FAERS Safety Report 8598834-5 (Version None)
Quarter: 2012Q3

REPORT INFORMATION
  Report Type: 
  Country: None (occurrence: None)
  Receive Date: 20120816
  Receipt Date: 20120808
  Transmission Date: 20120928
  Serious: Yes (Hospitalization)
  Sender: FDA-Public Use
  Company Number: JP-GLAXOSMITHKLINE-B0813768A

PATIENT
  Sex: Male
  Weight: 39 kg

DRUGS (7)
  1. RABEPRAZOLE SODIUM [Concomitant]
     Indication: PROPHYLAXIS
     Dosage: 10MG PER DAY
     Route: 048
  2. REVOLADE [Suspect]
     Indication: IDIOPATHIC THROMBOCYTOPENIC PURPURA
     Dosage: 12.5MG PER DAY
     Route: 048
     Dates: start: 20120328, end: 20120425
  3. TRANSAMINE CAP [Concomitant]
     Indication: PROPHYLAXIS
     Dosage: 500MG PER DAY
     Route: 048
  4. POLYGAM S/D [Concomitant]
     Indication: IDIOPATHIC THROMBOCYTOPENIC PURPURA
     Route: 030
  5. CEFAZOLIN SODIUM [Concomitant]
     Dosage: 3G PER DAY
     Route: 048
     Dates: start: 20120630, end: 20120703
  6. REVOLADE [Suspect]
     Dosage: 25MG PER DAY
     Route: 048
     Dates: start: 20120426, end: 20120704
  7. SENNOSIDE [Concomitant]
     Indication: PROPHYLAXIS
     Dosage: 12MG PER DAY
     Route: 048

REACTIONS (1)
  - MYELODYSPLASTIC SYNDROME [None]
